FAERS Safety Report 8860727 (Version 4)
Quarter: 2013Q4

REPORT INFORMATION
  Report Type: Spontaneous
  Country: FR (occurrence: FR)
  Receive Date: 20121025
  Receipt Date: 20131104
  Transmission Date: 20140711
  Serious: Yes (Death, Life-Threatening, Hospitalization, Other)
  Sender: FDA-Public Use
  Company Number: FR-ALEXION-A201201963

PATIENT
  Age: 28 Year
  Sex: Male

DRUGS (2)
  1. SOLIRIS 300MG [Suspect]
     Indication: THROMBOTIC MICROANGIOPATHY
     Dosage: 900 MG, QW
     Route: 042
     Dates: start: 20120813
  2. SOLIRIS 300MG [Suspect]
     Indication: OFF LABEL USE
     Dosage: 1200 MG, Q2W
     Route: 042

REACTIONS (12)
  - Death [Fatal]
  - Encephalopathy [Unknown]
  - Dyspnoea [Unknown]
  - Gastrointestinal disorder [Unknown]
  - Pleural effusion [Unknown]
  - Pericardial effusion [Unknown]
  - Brain oedema [Unknown]
  - Inappropriate schedule of drug administration [Unknown]
  - Pulmonary fibrosis [Unknown]
  - Spleen disorder [Unknown]
  - Ascites [Unknown]
  - Off label use [Unknown]
